FAERS Safety Report 26138923 (Version 1)
Quarter: 2025Q4

REPORT INFORMATION
  Report Type: Report from Study
  Country: US (occurrence: US)
  Receive Date: 20251210
  Receipt Date: 20251210
  Transmission Date: 20260119
  Serious: Yes (Other)
  Sender: ABBVIE
  Company Number: US-ABBVIE-6510965

PATIENT
  Age: 73 Year
  Sex: Male

DRUGS (1)
  1. CREON [Suspect]
     Active Substance: PANCRELIPASE AMYLASE\PANCRELIPASE LIPASE\PANCRELIPASE PROTEASE
     Indication: Pancreatic failure
     Route: 048
     Dates: start: 20250509

REACTIONS (9)
  - Gastric operation [Unknown]
  - Diarrhoea [Unknown]
  - Intestinal operation [Unknown]
  - Pancreatic operation [Unknown]
  - Liver operation [Unknown]
  - Gallbladder operation [Unknown]
  - Oesophageal operation [Unknown]
  - Pancreatic carcinoma [Unknown]
  - Diabetes mellitus [Unknown]

NARRATIVE: CASE EVENT DATE: 20250101
